FAERS Safety Report 7674239 (Version 5)
Quarter: 2012Q4

REPORT INFORMATION
  Report Type: Report from Study
  Country: GR (occurrence: GR)
  Receive Date: 20101118
  Receipt Date: 20121211
  Transmission Date: 20130627
  Serious: Yes (Hospitalization)
  Sender: FDA-Public Use
  Company Number: PHHY2010GR74124

PATIENT
  Age: 5 Year
  Sex: Female
  Weight: 17 kg

DRUGS (3)
  1. ICL670A [Suspect]
     Indication: THALASSAEMIA
     Dosage: 625 mg/kg, daily
     Route: 048
     Dates: start: 20090717, end: 20101030
  2. ICL670A [Suspect]
     Indication: IRON OVERLOAD
  3. DIURENE [Suspect]
     Indication: HYPERCALCIURIA
     Dosage: 0.5 DF, daily
     Route: 048
     Dates: start: 20100608, end: 20101030

REACTIONS (3)
  - Hypokalaemia [Recovered/Resolved]
  - Abdominal pain [Recovered/Resolved]
  - Vomiting [Recovered/Resolved]
